FAERS Safety Report 8050707-2 (Version None)
Quarter: 2012Q1

REPORT INFORMATION
  Report Type: 
  Country: None (occurrence: None)
  Receive Date: 20120117
  Receipt Date: 20120117
  Transmission Date: 20120608
  Serious: Yes (Life-Threatening, Hospitalization)
  Sender: FDA-Public Use
  Company Number: None

PATIENT
  Age: 62 Year
  Sex: Male
  Weight: 81.646 kg

DRUGS (1)
  1. RILUZOLE [Suspect]
     Indication: AMYOTROPHIC LATERAL SCLEROSIS
     Dosage: 50 MG
     Route: 048
     Dates: start: 20110306, end: 20111226

REACTIONS (6)
  - WHITE BLOOD CELL COUNT DECREASED [None]
  - DYSPNOEA [None]
  - PYREXIA [None]
  - CONFUSIONAL STATE [None]
  - BLOOD PRESSURE FLUCTUATION [None]
  - NEUROLEPTIC MALIGNANT SYNDROME [None]
